FAERS Safety Report 6640135-6 (Version None)
Quarter: 2010Q1

REPORT INFORMATION
  Report Type: 
  Country: None (occurrence: None)
  Receive Date: 20100318
  Receipt Date: 20100310
  Transmission Date: 20100710
  Serious: Yes (Hospitalization)
  Sender: FDA-Public Use
  Company Number: JP-ROCHE-686024

PATIENT
  Sex: Male
  Weight: 58 kg

DRUGS (12)
  1. CELLCEPT [Suspect]
     Route: 048
     Dates: start: 20080702, end: 20080715
  2. CELLCEPT [Suspect]
     Route: 048
     Dates: start: 20080702, end: 20080715
  3. CELLCEPT [Suspect]
     Route: 048
     Dates: start: 20080716, end: 20080729
  4. CELLCEPT [Suspect]
     Route: 048
     Dates: start: 20080730, end: 20080805
  5. CELLCEPT [Suspect]
     Route: 048
     Dates: start: 20080806, end: 20080819
  6. CELLCEPT [Suspect]
     Route: 048
     Dates: start: 20080820, end: 20081216
  7. CELLCEPT [Suspect]
     Route: 048
     Dates: start: 20080820, end: 20081216
  8. CELLCEPT [Suspect]
     Route: 048
     Dates: start: 20081217, end: 20090614
  9. TACROLIMUS HYDRATE [Concomitant]
     Route: 048
     Dates: start: 20080808
  10. METHYLPREDNISOLONE [Concomitant]
     Route: 048
     Dates: start: 20080808
  11. OMEPRAZOLE [Concomitant]
     Route: 048
     Dates: start: 20080812
  12. ALLEGRA [Concomitant]
     Route: 048
     Dates: start: 20090114

REACTIONS (1)
  - ENTEROCOLITIS [None]
